FAERS Safety Report 21515013 (Version 3)
Quarter: 2022Q4

REPORT INFORMATION
  Report Type: Spontaneous
  Country: CA (occurrence: CA)
  Receive Date: 20221027
  Receipt Date: 20221114
  Transmission Date: 20230113
  Serious: Yes (Other)
  Sender: FDA-Public Use
  Company Number: CA-PFIZER INC-202200547722

PATIENT
  Age: 32 Year
  Sex: Male
  Weight: 103 kg

DRUGS (6)
  1. RUXIENCE [Suspect]
     Active Substance: RITUXIMAB-PVVR
     Indication: Rheumatoid arthritis
     Dosage: 1000 MG EVERY 2 WEEKS, DAY 1 AND DAY 15
     Route: 042
     Dates: start: 20220325, end: 20220407
  2. RUXIENCE [Suspect]
     Active Substance: RITUXIMAB-PVVR
     Dosage: 1000 MG EVERY 2 WEEKS,DAY 1 AND DAY 15
     Route: 042
     Dates: start: 20220407
  3. RUXIENCE [Suspect]
     Active Substance: RITUXIMAB-PVVR
     Dosage: 1000 MG, DAY 1 AND DAY 15
     Route: 042
     Dates: start: 20221007, end: 20221021
  4. RUXIENCE [Suspect]
     Active Substance: RITUXIMAB-PVVR
     Dosage: 1000 MG, DAY 1 AND DAY 15
     Route: 042
     Dates: start: 20221021
  5. PREDNISONE [Concomitant]
     Active Substance: PREDNISONE
     Dosage: 1 DF DOSAGE NOT AVAILABLE
     Route: 065
  6. SOLU-CORTEF [Concomitant]
     Active Substance: HYDROCORTISONE SODIUM SUCCINATE
     Indication: Premedication
     Dosage: 100 MG
     Route: 042

REACTIONS (9)
  - Off label use [Unknown]
  - Product use issue [Unknown]
  - Skin disorder [Recovering/Resolving]
  - Pruritus [Recovering/Resolving]
  - Skin reaction [Recovering/Resolving]
  - Eyelid oedema [Recovering/Resolving]
  - Swelling of eyelid [Recovering/Resolving]
  - Drug ineffective [Unknown]
  - Hypersensitivity [Not Recovered/Not Resolved]

NARRATIVE: CASE EVENT DATE: 20221021
